FAERS Safety Report 4470035-1 (Version None)
Quarter: 2004Q3

REPORT INFORMATION
  Report Type: 
  Country: None (occurrence: None)
  Receive Date: 20040920
  Receipt Date: 20040818
  Transmission Date: 20050211
  Serious: Yes (Other)
  Sender: FDA-Public Use
  Company Number: PHEH2004US08976

PATIENT
  Age: 61 Year
  Sex: Female
  Weight: 117.9 kg

DRUGS (6)
  1. ZOMETA [Suspect]
     Indication: METASTASES TO BONE
     Dosage: 4 MG, QMO, INTRAVENOUS
     Route: 042
     Dates: start: 20020508, end: 20040714
  2. DECADRON [Concomitant]
  3. THALIDOMIDE (THALIDOMIDE) [Concomitant]
  4. OXYCONTIN [Concomitant]
  5. LEVAQUIN [Concomitant]
  6. COMPAZINE [Concomitant]

REACTIONS (4)
  - ABSCESS ORAL [None]
  - METASTASES TO BONE [None]
  - OSTEONECROSIS [None]
  - PLASMACYTOMA [None]
